FAERS Safety Report 7130416-4 (Version None)
Quarter: 2010Q4

REPORT INFORMATION
  Report Type: 
  Country: None (occurrence: None)
  Receive Date: 20101201
  Receipt Date: 20101129
  Transmission Date: 20110411
  Serious: Yes (Other)
  Sender: FDA-Public Use
  Company Number: US-SANOFI-AVENTIS-2010SA042253

PATIENT
  Age: 77 Year
  Sex: Female
  Weight: 66 kg

DRUGS (10)
  1. MULTAQ [Suspect]
     Indication: ATRIAL FIBRILLATION
     Route: 048
     Dates: start: 20100714, end: 20100901
  2. MULTAQ [Suspect]
     Route: 048
     Dates: start: 20101001, end: 20101122
  3. COUMADIN [Suspect]
     Route: 065
  4. VALIUM [Concomitant]
  5. DILTIAZEM [Concomitant]
     Dates: start: 20100101
  6. PRAVASTATIN [Concomitant]
     Dates: start: 20060101
  7. WARFARIN [Concomitant]
  8. SOTALOL [Concomitant]
  9. PRILOSEC [Concomitant]
  10. DIPHENHYDRAMINE HYDROCHLORIDE [Concomitant]

REACTIONS (14)
  - ABDOMINAL DISCOMFORT [None]
  - ABDOMINAL DISTENSION [None]
  - ABDOMINAL PAIN UPPER [None]
  - ASTHENIA [None]
  - CONTUSION [None]
  - DIARRHOEA [None]
  - DYSPEPSIA [None]
  - FATIGUE [None]
  - INTERNATIONAL NORMALISED RATIO INCREASED [None]
  - NAUSEA [None]
  - PALPITATIONS [None]
  - PARAESTHESIA [None]
  - RASH [None]
  - UNDERDOSE [None]
